FAERS Safety Report 7296235-3 (Version None)
Quarter: 2011Q1

REPORT INFORMATION
  Report Type: 
  Country: None (occurrence: None)
  Receive Date: 20110211
  Receipt Date: 20110211
  Transmission Date: 20110831
  Serious: Yes (Hospitalization)
  Sender: FDA-Public Use
  Company Number: None

PATIENT
  Sex: Male
  Weight: 63.5 kg

DRUGS (3)
  1. CARBOPLATIN [Suspect]
     Dosage: 810 MG
  2. BEVACIZUMAB (RHUMAB VEGF) [Suspect]
     Dosage: 953 MG
  3. TAXOL [Suspect]
     Dosage: 354 MG

REACTIONS (4)
  - PANCYTOPENIA [None]
  - CATHETER SITE HAEMORRHAGE [None]
  - SEPTIC SHOCK [None]
  - MALAISE [None]
